FAERS Safety Report 5730399-5 (Version None)
Quarter: 2008Q2

REPORT INFORMATION
  Report Type: 
  Country: None (occurrence: None)
  Receive Date: 20080505
  Receipt Date: 20080505
  Transmission Date: 20081010
  Serious: Yes (Other)
  Sender: FDA-Public Use
  Company Number: None

PATIENT
  Age: 71 Year
  Sex: Female
  Weight: 60.3284 kg

DRUGS (2)
  1. FOSAMAX [Suspect]
     Indication: BONE DENSITY INCREASED
     Dosage: 1 TABLET ONCE WEEKLY PO
     Route: 048
     Dates: start: 20080201, end: 20080209
  2. BONIVA [Suspect]
     Indication: BONE DENSITY INCREASED
     Dosage: 1 TABLET ONCE A MONTH PO
     Route: 048
     Dates: start: 20080301, end: 20080301

REACTIONS (3)
  - ARTHRALGIA [None]
  - BONE PAIN [None]
  - MYALGIA [None]
